FAERS Safety Report 6115429-3 (Version None)
Quarter: 2009Q1

REPORT INFORMATION
  Report Type: 
  Country: None (occurrence: None)
  Receive Date: 20090313
  Receipt Date: 20090304
  Transmission Date: 20090719
  Serious: Yes (Other)
  Sender: FDA-Public Use
  Company Number: US-AVENTIS-200911730US

PATIENT
  Age: 59 Year
  Sex: Female

DRUGS (2)
  1. LOVENOX [Suspect]
     Indication: FACTOR V LEIDEN MUTATION
  2. LOVENOX [Suspect]
     Indication: ANTIPHOSPHOLIPID SYNDROME

REACTIONS (3)
  - COAGULATION TIME PROLONGED [None]
  - CREATININE RENAL CLEARANCE DECREASED [None]
  - RENAL FAILURE [None]
